FAERS Safety Report 14490979 (Version 2)
Quarter: 2018Q1

REPORT INFORMATION
  Report Type: Spontaneous
  Country: US (occurrence: US)
  Receive Date: 20180206
  Receipt Date: 20180227
  Transmission Date: 20180509
  Serious: No
  Sender: FDA-Public Use
  Company Number: US-PFIZER INC-2018050211

PATIENT
  Age: 13 Year
  Sex: Male

DRUGS (1)
  1. CORTEF [Suspect]
     Active Substance: HYDROCORTISONE
     Dosage: UNK

REACTIONS (2)
  - Drug intolerance [Unknown]
  - Wrong technique in product usage process [Unknown]
